FAERS Safety Report 10527586 (Version 1)
Quarter: 2014Q4

REPORT INFORMATION
  Report Type: Spontaneous
  Country: US (occurrence: None)
  Receive Date: 20141016
  Receipt Date: 20141016
  Transmission Date: 20150528
  Serious: Yes (Hospitalization, Other)
  Sender: FDA-Public Use
  Company Number: None

PATIENT
  Age: 88 Year
  Sex: Male
  Weight: 74 kg

DRUGS (10)
  1. HEMORRHOIDAL SUPP HC [Concomitant]
  2. TAMSULOSIN [Concomitant]
     Active Substance: TAMSULOSIN
  3. MESALAMINE. [Concomitant]
     Active Substance: MESALAMINE
  4. FUROSEMIDE. [Concomitant]
     Active Substance: FUROSEMIDE
  5. PANTOPRAZOLE [Concomitant]
     Active Substance: PANTOPRAZOLE SODIUM
  6. AMINOCAPROIC ACID. [Suspect]
     Active Substance: AMINOCAPROIC ACID
     Indication: CYSTITIS HAEMORRHAGIC
     Dosage: CBI
     Route: 026
  7. ALUM [Suspect]
     Active Substance: POTASSIUM ALUM
     Indication: CYSTITIS HAEMORRHAGIC
     Dosage: CBI
     Route: 026
  8. PREDNISONE. [Concomitant]
     Active Substance: PREDNISONE
  9. SIMVASTATIN. [Concomitant]
     Active Substance: SIMVASTATIN
  10. MULTIVITAMIN [Concomitant]
     Active Substance: VITAMINS

REACTIONS (6)
  - Atrial fibrillation [None]
  - Hypoxia [None]
  - Product formulation issue [None]
  - Bladder perforation [None]
  - Deep vein thrombosis [None]
  - General physical health deterioration [None]

NARRATIVE: CASE EVENT DATE: 20140514
